FAERS Safety Report 5781002-X (Version None)
Quarter: 2008Q2

REPORT INFORMATION
  Report Type: 
  Country: None (occurrence: None)
  Receive Date: 20080620
  Receipt Date: 20080610
  Transmission Date: 20081010
  Serious: Yes (Hospitalization)
  Sender: FDA-Public Use
  Company Number: JP-ABBOTT-08P-087-0453501-00

PATIENT
  Sex: Male
  Weight: 51.5 kg

DRUGS (13)
  1. NORVIR [Suspect]
     Indication: HIV INFECTION
     Dosage: 100 MG, DAILY
     Route: 048
     Dates: start: 20070718
  2. ATAZANAVIR [Suspect]
     Indication: HIV INFECTION
     Dosage: 300 MG, DAILY
     Route: 048
     Dates: start: 20070718
  3. EMTRICITABINE W/TENOFOVIR [Suspect]
     Indication: HIV INFECTION
     Route: 048
     Dates: start: 20070718
  4. FOSCARNATE SODIUM HYDRATE [Suspect]
     Indication: CYTOMEGALOVIRUS INFECTION
     Route: 042
     Dates: start: 20070311, end: 20070710
  5. AZITHROMYCIN [Concomitant]
     Indication: OPPORTUNISTIC INFECTION PROPHYLAXIS
     Dosage: DAILY
     Route: 048
     Dates: start: 20070207, end: 20070530
  6. AZITHROMYCIN [Concomitant]
     Dosage: ONCE PER WEEK
     Route: 048
     Dates: start: 20070612
  7. ITRACONAZOLE [Concomitant]
     Indication: FUNGAL INFECTION
     Dosage: DAILY
     Route: 048
     Dates: start: 20070612
  8. ITRACONAZOLE [Concomitant]
     Indication: PROPHYLAXIS
  9. EFAVIRENZ [Concomitant]
     Indication: HIV INFECTION
     Dosage: 600 MG, DAILY
     Route: 048
     Dates: start: 20070606, end: 20070612
  10. ABACAVIR SULFATE/LAMIVUDINE [Concomitant]
     Indication: HIV INFECTION
     Dosage: 1 TABLET, DAILY
     Dates: start: 20070606, end: 20070614
  11. DEXCHLORPHENIRAMINE MALEATE [Concomitant]
     Indication: DRUG ERUPTION
     Dates: start: 20070612
  12. PREDNISOLONE SODIUM SUCCINATE INJ [Concomitant]
     Indication: DRUG USE FOR UNKNOWN INDICATION
     Dosage: 50 MG, DAILY
     Dates: start: 20070615, end: 20070621
  13. PREDNISOLONE SODIUM SUCCINATE INJ [Concomitant]
     Dosage: DECREASED DOSE
     Dates: start: 20070621

REACTIONS (5)
  - GLAUCOMA [None]
  - HYPOKALAEMIA [None]
  - HYPONATRAEMIA [None]
  - RENAL IMPAIRMENT [None]
  - UVEITIS [None]
